FAERS Safety Report 6960236-2 (Version None)
Quarter: 2010Q3

REPORT INFORMATION
  Report Type: 
  Country: None (occurrence: None)
  Receive Date: 20100901
  Receipt Date: 20100823
  Transmission Date: 20110219
  Serious: Yes (Hospitalization, Other)
  Sender: FDA-Public Use
  Company Number: US-ELI_LILLY_AND_COMPANY-US201005000327

PATIENT
  Age: 39 Year
  Sex: Male
  Weight: 108.84 kg

DRUGS (6)
  1. BYETTA [Suspect]
     Indication: TYPE 2 DIABETES MELLITUS
     Dosage: 10 UG, 2/D
     Route: 058
     Dates: start: 20070525, end: 20100503
  2. METFORMIN [Concomitant]
     Indication: TYPE 2 DIABETES MELLITUS
     Dosage: 1000 MG, 2/D
     Dates: start: 20070417, end: 20100503
  3. ASPIRIN [Concomitant]
     Indication: HYPERTENSION
     Dosage: 81 MG, DAILY (1/D)
  4. LIPITOR [Concomitant]
     Indication: HYPERLIPIDAEMIA
     Dosage: 20 MG, DAILY (1/D)
     Dates: start: 20070525
  5. LISINOPRIL [Concomitant]
     Indication: HYPERTENSION
     Dosage: 20 MG, DAILY (1/D)
     Dates: start: 20090407
  6. PROTONIX [Concomitant]
     Indication: GASTROOESOPHAGEAL REFLUX DISEASE
     Dosage: 40 MG, DAILY (1/D)
     Dates: end: 20100506

REACTIONS (3)
  - PANCREATITIS [None]
  - WEIGHT DECREASED [None]
  - WEIGHT INCREASED [None]
